FAERS Safety Report 12719606 (Version 3)
Quarter: 2016Q4

REPORT INFORMATION
  Report Type: Report from Study
  Country: BR (occurrence: BR)
  Receive Date: 20160907
  Receipt Date: 20161107
  Transmission Date: 20170207
  Serious: Yes (Hospitalization, Other)
  Sender: FDA-Public Use
  Company Number: PHHY2016BR016704

PATIENT
  Sex: Male
  Weight: 55 kg

DRUGS (2)
  1. AREDIA [Concomitant]
     Active Substance: PAMIDRONATE DISODIUM
     Indication: PRODUCT USED FOR UNKNOWN INDICATION
     Route: 065
  2. SANDOSTATIN LAR DEPOT [Suspect]
     Active Substance: OCTREOTIDE ACETATE
     Indication: NEUROENDOCRINE CARCINOMA
     Dosage: 20 MG, QMO
     Route: 030
     Dates: start: 2014

REACTIONS (18)
  - Brain neoplasm [Unknown]
  - Pain [Unknown]
  - Malaise [Recovering/Resolving]
  - Micturition disorder [Unknown]
  - Weight decreased [Not Recovered/Not Resolved]
  - Malignant neoplasm progression [Unknown]
  - Speech disorder [Not Recovered/Not Resolved]
  - Dehydration [Unknown]
  - Metastasis [Unknown]
  - Decreased appetite [Unknown]
  - Back pain [Recovering/Resolving]
  - Pain in extremity [Recovering/Resolving]
  - Musculoskeletal chest pain [Unknown]
  - Memory impairment [Unknown]
  - Bone disorder [Unknown]
  - Abasia [Unknown]
  - Hypophagia [Unknown]
  - Gait disturbance [Not Recovered/Not Resolved]
